FAERS Safety Report 6106426-2 (Version None)
Quarter: 2009Q1

REPORT INFORMATION
  Report Type: 
  Country: None (occurrence: None)
  Receive Date: 20090306
  Receipt Date: 20090303
  Transmission Date: 20090719
  Serious: Yes (Life-Threatening)
  Sender: FDA-Public Use
  Company Number: IT-ELI_LILLY_AND_COMPANY-IT200903000706

PATIENT
  Sex: Female

DRUGS (2)
  1. GEMZAR [Suspect]
     Indication: CHEMOTHERAPY
     Dosage: 1680 MG PER CYCLE
     Route: 042
     Dates: start: 20090129, end: 20090129
  2. PARAPLATIN [Concomitant]
     Indication: CHEMOTHERAPY
     Dosage: 560 MG PER CYCLE
     Route: 042
     Dates: start: 20090119, end: 20090129

REACTIONS (4)
  - ANGIOEDEMA [None]
  - DYSPNOEA [None]
  - PRURITUS [None]
  - URTICARIA [None]
